FAERS Safety Report 11616445 (Version 1)
Quarter: 2015Q4

REPORT INFORMATION
  Report Type: Spontaneous
  Country: US (occurrence: US)
  Receive Date: 20151009
  Receipt Date: 20151009
  Transmission Date: 20160304
  Serious: No
  Sender: FDA-Public Use
  Company Number: US-HORIZON-VIM-0113-2015

PATIENT
  Age: 70 Year
  Sex: Female
  Weight: 29 kg

DRUGS (6)
  1. PAXIL CR [Concomitant]
     Active Substance: PAROXETINE HYDROCHLORIDE
     Indication: GASTRIC DISORDER
  2. VIMOVO [Suspect]
     Active Substance: ESOMEPRAZOLE MAGNESIUM\NAPROXEN
     Route: 048
  3. SIMVASTATIN. [Concomitant]
     Active Substance: SIMVASTATIN
  4. ALPRAZOLAM. [Concomitant]
     Active Substance: ALPRAZOLAM
  5. NEXIUM [Suspect]
     Active Substance: ESOMEPRAZOLE MAGNESIUM
     Indication: GASTROOESOPHAGEAL REFLUX DISEASE
     Dosage: 40 MG ONCE DAILY
     Route: 048
  6. FERROSOL [Concomitant]
     Indication: MINERAL SUPPLEMENTATION

REACTIONS (12)
  - Musculoskeletal pain [Unknown]
  - Arthritis [Unknown]
  - Dyspepsia [Unknown]
  - Headache [Unknown]
  - Irritability [Unknown]
  - Intentional product misuse [Unknown]
  - Facial pain [Unknown]
  - Drug dose omission [Unknown]
  - Neck pain [Unknown]
  - Mental impairment [Unknown]
  - Mood altered [Unknown]
  - Anxiety [Unknown]
